FAERS Safety Report 17934721 (Version 1)
Quarter: 2020Q2

REPORT INFORMATION
  Report Type: Spontaneous
  Country: US (occurrence: US)
  Receive Date: 20200623
  Receipt Date: 20200623
  Transmission Date: 20200714
  Serious: Yes (Other)
  Sender: FDA-Public Use
  Company Number: None

PATIENT
  Age: 75 Year
  Sex: Female

DRUGS (23)
  1. ASPIRIN. [Concomitant]
     Active Substance: ASPIRIN
  2. POTASSIUM CHLORIDE. [Concomitant]
     Active Substance: POTASSIUM CHLORIDE
  3. NARCAN [Concomitant]
     Active Substance: NALOXONE HYDROCHLORIDE
  4. ATROVENT [Concomitant]
     Active Substance: IPRATROPIUM BROMIDE
  5. AMLODIPINE [Concomitant]
     Active Substance: AMLODIPINE BESYLATE
  6. FLONASE [Concomitant]
     Active Substance: FLUTICASONE PROPIONATE
  7. LIDOCAINE. [Concomitant]
     Active Substance: LIDOCAINE
  8. LASIX [Concomitant]
     Active Substance: FUROSEMIDE
  9. HUMULIN 70/30 [Concomitant]
     Active Substance: INSULIN HUMAN
  10. AMBRISENTAN 10MG TABLETS 30/BO: 10MG [Suspect]
     Active Substance: AMBRISENTAN
     Indication: PULMONARY ARTERIAL HYPERTENSION
     Route: 048
     Dates: start: 201710
  11. SILDENAFIL. [Concomitant]
     Active Substance: SILDENAFIL
  12. MAG-OX [Concomitant]
     Active Substance: MAGNESIUM OXIDE
  13. METOPROLOL. [Concomitant]
     Active Substance: METOPROLOL
  14. TRAMADOL. [Concomitant]
     Active Substance: TRAMADOL
  15. WARFARIN [Concomitant]
     Active Substance: WARFARIN
  16. BUSPIRONE [Concomitant]
     Active Substance: BUSPIRONE HYDROCHLORIDE
  17. KETOTIFEN [Concomitant]
     Active Substance: KETOTIFEN
  18. VITAMIN D3 [Concomitant]
     Active Substance: CHOLECALCIFEROL
  19. PERCOCET [Concomitant]
     Active Substance: ACETAMINOPHEN\OXYCODONE HYDROCHLORIDE
  20. ATORVASTATIN [Concomitant]
     Active Substance: ATORVASTATIN
  21. MVI [Concomitant]
     Active Substance: VITAMINS
  22. PREDNISONE. [Concomitant]
     Active Substance: PREDNISONE
  23. VITAMIN B12 [Concomitant]
     Active Substance: CYANOCOBALAMIN

REACTIONS (4)
  - Pyrexia [None]
  - Dyspnoea [None]
  - Cough [None]
  - Oropharyngeal pain [None]

NARRATIVE: CASE EVENT DATE: 20200609
